FAERS Safety Report 5128385-1 (Version None)
Quarter: 2006Q4

REPORT INFORMATION
  Report Type: 
  Country: None (occurrence: None)
  Receive Date: 20061011
  Receipt Date: 20060928
  Transmission Date: 20070319
  Serious: Yes (Other)
  Sender: FDA-Public Use
  Company Number: 2006118059

PATIENT
  Age: 53 Year
  Sex: Male

DRUGS (4)
  1. VORICONAZOLE (VORICONAZOLE) [Suspect]
  2. POSACONAZOLE [Suspect]
     Indication: FUNGAL INFECTION
  3. AMPHOTERICIN B [Suspect]
  4. ITRACONAZOLE [Concomitant]

REACTIONS (5)
  - ARTHRALGIA [None]
  - CRYPTOGENIC ORGANISING PNEUMONIA [None]
  - GRAFT VERSUS HOST DISEASE [None]
  - HEPATIC ENZYME INCREASED [None]
  - PULMONARY TOXICITY [None]
